FAERS Safety Report 14715994 (Version 1)
Quarter: 2018Q2

REPORT INFORMATION
  Report Type: Spontaneous
  Country: US (occurrence: US)
  Receive Date: 20180404
  Receipt Date: 20180404
  Transmission Date: 20180711
  Serious: Yes (Hospitalization)
  Sender: FDA-Public Use
  Company Number: US-CELGENEUS-USA-20180310869

PATIENT
  Age: 68 Year
  Sex: Male
  Weight: 115.77 kg

DRUGS (3)
  1. REVLIMID [Suspect]
     Active Substance: LENALIDOMIDE
     Indication: PLASMA CELL MYELOMA
     Dosage: 25 MILLIGRAM
     Route: 048
     Dates: start: 201703
  2. REVLIMID [Suspect]
     Active Substance: LENALIDOMIDE
     Dosage: 15
     Route: 048
     Dates: start: 201705
  3. REVLIMID [Suspect]
     Active Substance: LENALIDOMIDE
     Dosage: 10 MILLIGRAM
     Route: 048
     Dates: start: 201708

REACTIONS (9)
  - Fatigue [Unknown]
  - Neck pain [Unknown]
  - Fall [Unknown]
  - Heart rate decreased [Unknown]
  - Headache [Unknown]
  - Back pain [Unknown]
  - Disorientation [Unknown]
  - Hypotension [Unknown]
  - Back injury [Unknown]

NARRATIVE: CASE EVENT DATE: 201803
